FAERS Safety Report 6315612-8 (Version None)
Quarter: 2009Q3

REPORT INFORMATION
  Report Type: 
  Country: None (occurrence: None)
  Receive Date: 20090818
  Receipt Date: 20090805
  Transmission Date: 20100115
  Serious: Yes (Other)
  Sender: FDA-Public Use
  Company Number: 001482

PATIENT
  Age: 81 Year
  Sex: Male

DRUGS (2)
  1. VIMPAT [Suspect]
     Dates: start: 20090501
  2. KEPPRA [Suspect]

REACTIONS (1)
  - DYSPNOEA [None]
